FAERS Safety Report 5886289-0 (Version None)
Quarter: 2008Q3

REPORT INFORMATION
  Report Type: 
  Country: None (occurrence: None)
  Receive Date: 20080917
  Receipt Date: 20080908
  Transmission Date: 20090109
  Serious: Yes (Hospitalization)
  Sender: FDA-Public Use
  Company Number: A0729679A

PATIENT
  Age: 59 Year
  Sex: Male
  Weight: 102.3 kg

DRUGS (10)
  1. AVANDIA [Suspect]
     Dosage: 8MG TWICE PER DAY
     Route: 048
     Dates: start: 20001001, end: 20060201
  2. GLUCOPHAGE [Concomitant]
     Dates: start: 19990101, end: 20020101
  3. COREG [Concomitant]
     Dates: start: 20060201, end: 20070801
  4. HYDROCHLOROTHIAZIDE [Concomitant]
     Dates: start: 20050101
  5. LASIX [Concomitant]
  6. NOVOLOG [Concomitant]
  7. DIOVAN [Concomitant]
  8. LIPITOR [Concomitant]
  9. CLARINEX [Concomitant]
  10. LAMISIL [Concomitant]

REACTIONS (4)
  - CARDIAC FAILURE CONGESTIVE [None]
  - CARDIOMYOPATHY [None]
  - CORONARY ARTERY DISEASE [None]
  - PULMONARY HYPERTENSION [None]
